FAERS Safety Report 13051097 (Version 3)
Quarter: 2017Q1

REPORT INFORMATION
  Report Type: Spontaneous
  Country: US (occurrence: US)
  Receive Date: 20161221
  Receipt Date: 20170216
  Transmission Date: 20170428
  Serious: Yes (Other)
  Sender: FDA-Public Use
  Company Number: US-PFIZER INC-2016589033

PATIENT
  Age: 78 Year
  Sex: Female
  Weight: 73.47 kg

DRUGS (1)
  1. NEURONTIN [Suspect]
     Active Substance: GABAPENTIN
     Indication: PAIN
     Dosage: 100 MG, THREE TIMES A DAY
     Route: 048
     Dates: start: 20161128, end: 20161213

REACTIONS (4)
  - Drug ineffective for unapproved indication [Unknown]
  - Retinal haemorrhage [Unknown]
  - Vision blurred [Not Recovered/Not Resolved]
  - Retinal oedema [Unknown]

NARRATIVE: CASE EVENT DATE: 201611
